FAERS Safety Report 9414538 (Version 1)
Quarter: 2013Q3

REPORT INFORMATION
  Report Type: Spontaneous
  Country: US (occurrence: US)
  Receive Date: 20130723
  Receipt Date: 20130723
  Transmission Date: 20140515
  Serious: Yes (Other)
  Sender: FDA-Public Use
  Company Number: US-COVIDIEN/TYCO HEALTHCARE/MALLINCKRODT-T201303784

PATIENT
  Age: 61 Year
  Sex: Male
  Weight: 98.87 kg

DRUGS (13)
  1. EXALGO EXTENDED RELEASE [Suspect]
     Indication: PAIN
     Dosage: 12 MG, 2 TABS Q 12HRS
     Route: 048
     Dates: start: 20130315
  2. ASPIRIN [Concomitant]
     Dosage: 81 MG, QD
     Route: 048
  3. LIPITOR [Concomitant]
     Dosage: 10 MG, QD
     Route: 048
  4. CELEBREX [Concomitant]
     Dosage: 200 MG, UNK
     Route: 048
  5. KLONOPIN [Concomitant]
     Dosage: 100 MG, QD
     Route: 048
  6. FLEXERIL                           /00428402/ [Concomitant]
     Dosage: 10 MG, UNK
     Route: 048
  7. NEXIUM                             /01479302/ [Concomitant]
     Dosage: UNK, QD
     Route: 048
  8. ALLEGRA [Concomitant]
     Dosage: 180 MG, UNK
     Route: 048
  9. PROZAC [Concomitant]
     Dosage: 40 MG, UNK
     Route: 048
  10. NEURONTIN [Concomitant]
     Dosage: 300 MG, QID
     Route: 048
  11. TRAZODONE [Concomitant]
     Dosage: 100 MG, QHS
     Route: 048
  12. TESTOSTERONE                        /00103101/ [Concomitant]
     Dosage: 100 UNK, UNK
  13. FLOMAX                             /00889901/ [Concomitant]
     Dosage: 0.4 MG, QD
     Route: 048

REACTIONS (2)
  - Withdrawal syndrome [Not Recovered/Not Resolved]
  - Salivary hypersecretion [Not Recovered/Not Resolved]
